FAERS Safety Report 9432901 (Version 1)
Quarter: 2013Q3

REPORT INFORMATION
  Report Type: Report from Study
  Country: DE (occurrence: DE)
  Receive Date: 20130731
  Receipt Date: 20130731
  Transmission Date: 20140515
  Serious: No
  Sender: FDA-Public Use
  Company Number: PHHY2013DE059871

PATIENT
  Sex: Female
  Weight: 78 kg

DRUGS (16)
  1. AMN107 [Suspect]
     Indication: CHRONIC MYELOID LEUKAEMIA
     Dosage: 600 MG,PER DAY
     Route: 048
     Dates: start: 20110223, end: 20110310
  2. AMN107 [Suspect]
     Dosage: 300 MG, PER DAY
     Route: 048
     Dates: start: 20110310, end: 20110330
  3. TORASEMID [Concomitant]
     Dosage: UNK UKN, UNK
     Dates: start: 201006
  4. MIRTAZAPIN [Concomitant]
     Dosage: UNK UKN, UNK
     Dates: start: 201006, end: 201103
  5. VERTIGOHEEL [Concomitant]
     Dosage: UNK UKN, UNK
     Dates: start: 201006, end: 201103
  6. MST [Concomitant]
     Dosage: UNK UKN, UNK
     Dates: start: 201006
  7. XIPAMID [Concomitant]
     Dosage: UNK UKN, UNK
     Dates: start: 20110331
  8. ASS [Concomitant]
     Dosage: UNK UKN, UNK
     Dates: start: 20110331
  9. MAGNESIUM VERLA [Concomitant]
     Dosage: UNK UKN, UNK
     Dates: start: 20110331, end: 20111019
  10. RESTEX [Concomitant]
     Dosage: UNK
     Dates: start: 20130331
  11. PANTOPRAZOLE [Concomitant]
     Dosage: UNK
     Dates: start: 20110331, end: 20120123
  12. NOVAMINSULFON [Concomitant]
     Dosage: UNK
     Dates: start: 20110331
  13. OMEPRAZOL [Concomitant]
     Dosage: UNK
     Dates: start: 20120717
  14. LYRICA [Concomitant]
     Dosage: UNK
     Dates: start: 20120717
  15. METAMIZOL [Concomitant]
     Dosage: UNK
     Dates: start: 20120717
  16. RAMIPRIL [Concomitant]
     Dosage: UNK
     Dates: start: 20120717

REACTIONS (1)
  - Osteoarthritis [Not Recovered/Not Resolved]
